FAERS Safety Report 4333216-3 (Version None)
Quarter: 2004Q2

REPORT INFORMATION
  Report Type: 
  Country: None (occurrence: None)
  Receive Date: 20040405
  Receipt Date: 20040405
  Transmission Date: 20050107
  Serious: No
  Sender: FDA-Public Use
  Company Number: None

PATIENT
  Age: 33 Year
  Sex: Male
  Weight: 122.4712 kg

DRUGS (1)
  1. ZOLOFT [Suspect]
     Indication: PANIC ATTACK
     Dosage: 100 MG DAILY ORAL
     Route: 048
     Dates: start: 20030309, end: 20030402

REACTIONS (4)
  - INSOMNIA [None]
  - NERVOUSNESS [None]
  - PARAESTHESIA [None]
  - WEIGHT INCREASED [None]
